FAERS Safety Report 9258479 (Version 1)
Quarter: 2013Q2

REPORT INFORMATION
  Report Type: Spontaneous
  Country: AU (occurrence: AU)
  Receive Date: 20130426
  Receipt Date: 20130426
  Transmission Date: 20140414
  Serious: Yes (Other)
  Sender: FDA-Public Use
  Company Number: PHHY2013AU040099

PATIENT
  Age: 44 Year
  Sex: Male

DRUGS (6)
  1. DROPERIDOL [Suspect]
     Route: 042
  2. OMEPRAZOLE [Suspect]
     Route: 042
  3. RANITIDINE [Suspect]
     Route: 042
  4. MORPHINE [Suspect]
     Dosage: 20 MG, UNK
     Route: 042
  5. ONDANSETRON [Suspect]
     Dosage: 8 MG, UNK
     Route: 042
  6. HIYOSINE [Suspect]
     Dosage: 20 MG, UNK
     Route: 042

REACTIONS (2)
  - Dystonia [Recovered/Resolved]
  - Trismus [Recovered/Resolved]
